FAERS Safety Report 18992130 (Version 1)
Quarter: 2021Q1

REPORT INFORMATION
  Report Type: Spontaneous
  Country: US (occurrence: US)
  Receive Date: 20210310
  Receipt Date: 20210310
  Transmission Date: 20210420
  Serious: Yes (Hospitalization)
  Sender: FDA-Public Use
  Company Number: None

PATIENT
  Age: 72 Year
  Sex: Female

DRUGS (17)
  1. ALPRAZOLAM. [Concomitant]
     Active Substance: ALPRAZOLAM
     Dates: start: 20190709
  2. ONDANSENTRON [Concomitant]
     Dates: start: 20190918
  3. TACROLIMUS. [Suspect]
     Active Substance: TACROLIMUS
     Indication: LUNG TRANSPLANT
     Dosage: ?          OTHER FREQUENCY:Q12H;?
     Route: 048
     Dates: start: 20190531
  4. PANTOPRAZOLE [Concomitant]
     Active Substance: PANTOPRAZOLE
     Dates: start: 20200317
  5. DIGOXIN. [Concomitant]
     Active Substance: DIGOXIN
     Dates: start: 20200518
  6. FLUOXETINE [Concomitant]
     Active Substance: FLUOXETINE HYDROCHLORIDE
     Dates: start: 20200617
  7. RANITIDINE. [Concomitant]
     Active Substance: RANITIDINE
     Dates: start: 20190709
  8. BUMETADINE [Concomitant]
     Active Substance: BUMETANIDE
     Dates: start: 20200108
  9. AZATHIOPRINE. [Concomitant]
     Active Substance: AZATHIOPRINE
     Dates: start: 20200122
  10. LOSARTAN POTASSIUM. [Concomitant]
     Active Substance: LOSARTAN POTASSIUM
     Dates: start: 20210302
  11. AMLODIPINE [Concomitant]
     Active Substance: AMLODIPINE BESYLATE
     Dates: start: 20190926
  12. METOPROLOL SUCC [Concomitant]
     Active Substance: METOPROLOL SUCCINATE
     Dates: start: 20191216
  13. PRIMIDONE. [Concomitant]
     Active Substance: PRIMIDONE
     Dates: start: 20200227
  14. VERAPAMIL [Concomitant]
     Active Substance: VERAPAMIL HYDROCHLORIDE
     Dates: start: 20200227
  15. SIROLIMUS. [Suspect]
     Active Substance: SIROLIMUS
     Indication: LUNG TRANSPLANT
     Route: 048
     Dates: start: 20200915
  16. HYDROCODONE/ APAP [Concomitant]
     Active Substance: ACETAMINOPHEN\HYDROCODONE
     Dates: start: 20191114
  17. SUCRALFATE. [Concomitant]
     Active Substance: SUCRALFATE
     Dates: start: 20200617

REACTIONS (1)
  - Hypertension [None]

NARRATIVE: CASE EVENT DATE: 20210204
